FAERS Safety Report 6590332-3 (Version None)
Quarter: 2010Q1

REPORT INFORMATION
  Report Type: 
  Country: None (occurrence: None)
  Receive Date: 20100219
  Receipt Date: 20100217
  Transmission Date: 20100710
  Serious: Yes (Other)
  Sender: FDA-Public Use
  Company Number: FR-ASTRAZENECA-2009SE31923

PATIENT
  Age: 23754 Day
  Sex: Male

DRUGS (4)
  1. ZD6474 CODE NOT BROKEN [Suspect]
     Indication: PROSTATE CANCER METASTATIC
     Dosage: DAILY
     Route: 048
     Dates: start: 20091109, end: 20091207
  2. CASODEX [Suspect]
     Indication: PROSTATE CANCER METASTATIC
     Route: 048
     Dates: start: 20091109, end: 20091207
  3. BIPRETERAX [Concomitant]
     Indication: HYPERTENSION
     Route: 048
     Dates: start: 20091104
  4. ATENOLOL [Concomitant]
     Indication: HYPERTENSION
     Route: 048
     Dates: start: 20050101

REACTIONS (2)
  - ELECTROCARDIOGRAM QT PROLONGED [None]
  - HYPERTENSION [None]
